FAERS Safety Report 7434836-X (Version None)
Quarter: 2011Q2

REPORT INFORMATION
  Report Type: 
  Country: None (occurrence: None)
  Receive Date: 20110415
  Receipt Date: 20110407
  Transmission Date: 20111010
  Serious: Yes (Hospitalization)
  Sender: FDA-Public Use
  Company Number: 2011SP016173

PATIENT
  Age: 84 Year
  Sex: Male

DRUGS (3)
  1. ORGARAN [Suspect]
     Indication: PROPHYLAXIS
     Dosage: IV
     Route: 042
  2. HEPARIN SODIUM [Suspect]
     Indication: PROPHYLAXIS
  3. UNFRACTIONATED SODIUM [Concomitant]

REACTIONS (10)
  - SUBCLAVIAN VEIN THROMBOSIS [None]
  - VENOUS THROMBOSIS [None]
  - DRUG EFFECT DECREASED [None]
  - BLOOD CREATININE INCREASED [None]
  - RENAL IMPAIRMENT [None]
  - PNEUMONIA [None]
  - ARTERIAL THROMBOSIS [None]
  - JUGULAR VEIN THROMBOSIS [None]
  - ACCIDENTAL OVERDOSE [None]
  - HEPARIN-INDUCED THROMBOCYTOPENIA [None]
